FAERS Safety Report 4922927-4 (Version None)
Quarter: 2006Q1

REPORT INFORMATION
  Report Type: 
  Country: None (occurrence: None)
  Receive Date: 20060224
  Receipt Date: 20051028
  Transmission Date: 20060701
  Serious: Yes (Hospitalization, Disabling)
  Sender: FDA-Public Use
  Company Number: US-MERCK-0510USA09954

PATIENT
  Age: 40 Year
  Sex: Female
  Weight: 100 kg

DRUGS (13)
  1. COPAXONE [Concomitant]
     Indication: MULTIPLE SCLEROSIS
     Route: 065
  2. VICODIN [Concomitant]
     Route: 065
     Dates: start: 20010101
  3. ALEVE [Concomitant]
     Route: 065
     Dates: start: 20020101
  4. ALEVE [Concomitant]
     Route: 065
     Dates: start: 20020101
  5. DARVOCET-N 50 [Concomitant]
     Route: 065
     Dates: start: 20030101
  6. NAPROXEN [Concomitant]
     Route: 065
     Dates: start: 20010101
  7. BACLOFEN [Concomitant]
     Indication: MULTIPLE SCLEROSIS
     Route: 065
  8. NORCO [Concomitant]
     Indication: BACK PAIN
     Route: 065
  9. TYLENOL (CAPLET) [Concomitant]
     Route: 065
     Dates: start: 20010101, end: 20040101
  10. VIOXX [Suspect]
     Indication: MULTIPLE SCLEROSIS
     Route: 048
     Dates: start: 20010101, end: 20040101
  11. VIOXX [Suspect]
     Indication: BACK PAIN
     Route: 048
     Dates: start: 20010101, end: 20040101
  12. CLARITIN [Concomitant]
     Route: 065
  13. ALLEGRA [Concomitant]
     Route: 065

REACTIONS (14)
  - BLOOD CHOLESTEROL INCREASED [None]
  - CEREBROVASCULAR ACCIDENT [None]
  - CHEST PAIN [None]
  - DEPRESSION [None]
  - DIABETES MELLITUS [None]
  - EYE HAEMORRHAGE [None]
  - FEAR [None]
  - GASTROOESOPHAGEAL REFLUX DISEASE [None]
  - HEADACHE [None]
  - HYPERTENSION [None]
  - INSOMNIA [None]
  - MENTAL IMPAIRMENT [None]
  - NAUSEA [None]
  - UTERINE DISORDER [None]
